FAERS Safety Report 5323620-9 (Version None)
Quarter: 2007Q2

REPORT INFORMATION
  Report Type: 
  Country: None (occurrence: None)
  Receive Date: 20070514
  Receipt Date: 20070502
  Transmission Date: 20071010
  Serious: Yes (Other)
  Sender: FDA-Public Use
  Company Number: US-AMGEN-KDL195387

PATIENT
  Age: 40 Year
  Sex: Female
  Weight: 49.9 kg

DRUGS (5)
  1. PROCRIT [Suspect]
     Indication: RENAL FAILURE CHRONIC
     Route: 058
     Dates: start: 20040101, end: 20060808
  2. PREDNISONE TAB [Concomitant]
  3. CYCLOSPORINE [Concomitant]
  4. CLONIDINE [Concomitant]
  5. CELLCEPT [Concomitant]
     Dates: start: 20001203, end: 20060808

REACTIONS (3)
  - APLASIA PURE RED CELL [None]
  - HYPERPARATHYROIDISM [None]
  - THERAPEUTIC RESPONSE DECREASED [None]
